FAERS Safety Report 24685179 (Version 1)
Quarter: 2024Q4

REPORT INFORMATION
  Report Type: Spontaneous
  Country: US (occurrence: US)
  Receive Date: 20241202
  Receipt Date: 20241202
  Transmission Date: 20250114
  Serious: Yes (Other)
  Sender: AMGEN
  Company Number: US-AMGEN-USASP2024232792

PATIENT

DRUGS (4)
  1. FILGRASTIM [Suspect]
     Active Substance: FILGRASTIM
     Indication: Acute leukaemia
     Dosage: UNK
     Route: 065
  2. OLANZAPINE [Concomitant]
     Active Substance: OLANZAPINE
     Indication: Nausea
     Dosage: (5 TO O 10 MG ONCE DAILY REGIMEN ON DAYS 1 TO 4), QD
     Route: 048
  3. OLANZAPINE [Concomitant]
     Active Substance: OLANZAPINE
     Indication: Vomiting
     Dosage: 5 MILLIGRAM, BID (ON DAYS 6 AND 7) AS NEEDED
     Route: 048
  4. ONDANSETRON [Concomitant]
     Active Substance: ONDANSETRON
     Indication: Prophylaxis
     Dosage: 16 MILLIGRAM, QD (ON DAYS 1 TO 5)
     Route: 048

REACTIONS (8)
  - Hallucination [Unknown]
  - Adverse event [Unknown]
  - Sleep disorder [Unknown]
  - Sedation [Unknown]
  - Confusional state [Unknown]
  - Dry mouth [Unknown]
  - Fatigue [Unknown]
  - Dizziness [Unknown]
